FAERS Safety Report 17212945 (Version 2)
Quarter: 2020Q1

REPORT INFORMATION
  Report Type: Spontaneous
  Country: US (occurrence: US)
  Receive Date: 20191230
  Receipt Date: 20200106
  Transmission Date: 20200409
  Serious: Yes (Hospitalization)
  Sender: FDA-Public Use
  Company Number: US-STRIDES ARCOLAB LIMITED-2019SP013274

PATIENT
  Age: 82 Year
  Sex: Female

DRUGS (1)
  1. HYDRALAZINE HCL [Suspect]
     Active Substance: HYDRALAZINE HYDROCHLORIDE
     Indication: HYPERTENSION
     Dosage: UNK, SINGLE
     Route: 042

REACTIONS (7)
  - Hypoperfusion [Unknown]
  - Optic ischaemic neuropathy [Recovered/Resolved]
  - Hypoxia [Unknown]
  - Blood pressure decreased [Unknown]
  - Blindness [Recovered/Resolved]
  - Diastolic dysfunction [Unknown]
  - Mental status changes [Unknown]
